FAERS Safety Report 6613721-7 (Version None)
Quarter: 2010Q1

REPORT INFORMATION
  Report Type: 
  Country: None (occurrence: None)
  Receive Date: 20100225
  Receipt Date: 20090313
  Transmission Date: 20100710
  Serious: Yes (Other)
  Sender: FDA-Public Use
  Company Number: 621409

PATIENT
  Age: 30 Year
  Sex: Female
  Weight: 52.2 kg

DRUGS (5)
  1. ACCUTANE [Suspect]
     Indication: ACNE
     Dosage: 40 MG 1 PER 1 DAY ORAL
     Route: 048
     Dates: start: 19861117, end: 20041116
  2. DURICEF [Concomitant]
  3. BENZAMYCIN (BENZOYL PEROXIDE/ERYTHROMYCIN) [Concomitant]
  4. ERYTHROMYCIN [Concomitant]
  5. DOXYCYCLINE [Concomitant]

REACTIONS (3)
  - COLITIS ULCERATIVE [None]
  - INFLAMMATORY BOWEL DISEASE [None]
  - PROCTITIS ULCERATIVE [None]
